FAERS Safety Report 8915320 (Version 3)
Quarter: 2012Q4

REPORT INFORMATION
  Report Type: 
  Country: DE (occurrence: DE)
  Receive Date: 20121116
  Receipt Date: 20121126
  Transmission Date: 20130627
  Serious: Yes (Other)
  Sender: FDA-Public Use
  Company Number: DE-JNJFOC-20121106800

PATIENT
  Age: 12 Year
  Sex: Male

DRUGS (5)
  1. DOXORUBICIN [Suspect]
     Indication: BONE SARCOMA
     Dosage: during the first course given 75 mg/m2 and in the next course, the dose was not specified.
     Route: 042
  2. CISPLATIN [Suspect]
     Indication: BONE SARCOMA
     Dosage: in the first dose was 120 mg/m2 and then the dose was not specified
     Route: 065
  3. METHOTREXATE [Suspect]
     Indication: BONE SARCOMA
     Dosage: high dose 12 g/m2 in first course, then next cycles given and methotrexate level routinely meaasured
     Route: 065
  4. IFOSFAMIDE [Suspect]
     Indication: BONE SARCOMA
     Route: 065
  5. ETOPOSIDE [Suspect]
     Indication: BONE SARCOMA
     Route: 065

REACTIONS (4)
  - Renal failure acute [Unknown]
  - Hepatotoxicity [Unknown]
  - Coagulopathy [Unknown]
  - Off label use [Unknown]
